FAERS Safety Report 4311177-0 (Version None)
Quarter: 2004Q1

REPORT INFORMATION
  Report Type: 
  Country: None (occurrence: None)
  Receive Date: 20040302
  Receipt Date: 20040302
  Transmission Date: 20041129
  Serious: Yes (Hospitalization)
  Sender: FDA-Public Use
  Company Number: None

PATIENT
  Sex: Female
  Weight: 80 kg

DRUGS (5)
  1. METRONIDAZOLE [Suspect]
     Indication: BACTERIA STOOL IDENTIFIED
     Dosage: 500 MG Q 8 HRS ORAL
     Route: 048
     Dates: start: 20040224, end: 20040227
  2. CYCLOSPORINE [Concomitant]
  3. FENTANYL [Concomitant]
  4. FLUCONAZOLE [Concomitant]
  5. SERTRALINE HCL [Concomitant]

REACTIONS (3)
  - ABDOMINAL PAIN [None]
  - BLOOD AMYLASE INCREASED [None]
  - LIPASE INCREASED [None]
